FAERS Safety Report 15436536 (Version 1)
Quarter: 2018Q3

REPORT INFORMATION
  Report Type: Report from Study
  Country: FR (occurrence: FR)
  Receive Date: 20180927
  Receipt Date: 20180927
  Transmission Date: 20181010
  Serious: Yes (Hospitalization)
  Sender: FDA-Public Use
  Company Number: FR-PFIZER INC-2018244579

PATIENT
  Age: 76 Year
  Sex: Male
  Weight: 65 kg

DRUGS (16)
  1. IRINOTECAN HCL [Suspect]
     Active Substance: IRINOTECAN HYDROCHLORIDE
     Indication: COLORECTAL CANCER METASTATIC
     Dosage: 320 MG, CYCLIC
     Route: 065
     Dates: start: 20160113, end: 20160113
  2. SERETIDE [Concomitant]
     Active Substance: FLUTICASONE PROPIONATE\SALMETEROL XINAFOATE
     Indication: ASTHMA
     Route: 055
  3. FLUOROURACIL. [Suspect]
     Active Substance: FLUOROURACIL
     Dosage: 4300 MG, CYCLIC
     Route: 041
     Dates: start: 20160315, end: 20160315
  4. AUGMENTIN [Concomitant]
     Active Substance: AMOXICILLIN\CLAVULANATE POTASSIUM
     Indication: PYREXIA
     Dates: start: 20160105, end: 20160111
  5. IRINOTECAN HCL [Suspect]
     Active Substance: IRINOTECAN HYDROCHLORIDE
     Dosage: 320 MG, CYCLIC
     Route: 065
     Dates: start: 20160315, end: 20160315
  6. FLUOROURACIL. [Suspect]
     Active Substance: FLUOROURACIL
     Dosage: 700 MG, CYCLIC
     Route: 040
     Dates: start: 20160315, end: 20160315
  7. CALCIUM FOLINATE [Suspect]
     Active Substance: LEUCOVORIN CALCIUM
     Dosage: 360 MG, CYCLIC
     Route: 065
     Dates: start: 20160315, end: 20160315
  8. GLUCOPHAGE [Concomitant]
     Active Substance: METFORMIN HYDROCHLORIDE
     Indication: DIABETES MELLITUS
     Dosage: 3 DF, 1X/DAY
  9. LOXEN /00639802/ [Concomitant]
     Active Substance: NICARDIPINE HYDROCHLORIDE
     Indication: HYPERTENSION
     Dosage: 2 DF, 1X/DAY
  10. HAVLANE [Concomitant]
     Active Substance: LOPRAZOLAM
     Indication: SLEEP DISORDER
     Dosage: 1 DF, 1X/DAY
     Dates: start: 20160120
  11. FLUOROURACIL. [Suspect]
     Active Substance: FLUOROURACIL
     Indication: COLORECTAL CANCER METASTATIC
     Dosage: 4300 MG, CYCLIC
     Route: 041
     Dates: start: 20160113, end: 20160113
  12. SOLUPRED /00016201/ [Concomitant]
     Active Substance: PREDNISOLONE
     Indication: PYREXIA
     Dates: start: 20160105, end: 20160111
  13. FLUOROURACIL. [Suspect]
     Active Substance: FLUOROURACIL
     Dosage: 700 MG, CYCLIC
     Route: 040
     Dates: start: 20160113, end: 20160113
  14. AFLIBERCEPT [Suspect]
     Active Substance: AFLIBERCEPT
     Indication: COLORECTAL CANCER METASTATIC
     Dosage: 250 MG, CYCLIC
     Route: 065
     Dates: start: 20160113, end: 20160113
  15. CALCIUM FOLINATE [Suspect]
     Active Substance: LEUCOVORIN CALCIUM
     Indication: COLORECTAL CANCER METASTATIC
     Dosage: 360 MG, CYCLIC
     Route: 065
     Dates: start: 20160113, end: 20160113
  16. AFLIBERCEPT [Suspect]
     Active Substance: AFLIBERCEPT
     Dosage: 250 MG, CYCLIC
     Route: 065
     Dates: start: 20160315, end: 20160315

REACTIONS (1)
  - Sepsis [Recovered/Resolved]

NARRATIVE: CASE EVENT DATE: 20160129
